FAERS Safety Report 12764628 (Version 2)
Quarter: 2016Q3

REPORT INFORMATION
  Report Type: Report from Study
  Country: TR (occurrence: TR)
  Receive Date: 20160920
  Receipt Date: 20160928
  Transmission Date: 20161109
  Serious: Yes (Death, Other)
  Sender: FDA-Public Use
  Company Number: US-ASTRAZENECA-2016SF00485

PATIENT
  Age: 37 Day
  Sex: Male
  Weight: .7 kg

DRUGS (1)
  1. PALIVIZUMAB [Suspect]
     Active Substance: PALIVIZUMAB
     Indication: PRODUCT USED FOR UNKNOWN INDICATION
     Dosage: 15MG/KG
     Route: 030

REACTIONS (2)
  - Respiratory syncytial virus infection [Fatal]
  - Death [Fatal]

NARRATIVE: CASE EVENT DATE: 200901
